FAERS Safety Report 8054395 (Version 2)
Quarter: 2012Q4

REPORT INFORMATION
  Report Type: 
  Country: US (occurrence: US)
  Receive Date: 20110726
  Receipt Date: 20121109
  Transmission Date: 20130627
  Serious: Yes (Other)
  Sender: FDA-Public Use
  Company Number: US-AMGEN-USASP2011036201

PATIENT
  Age: 57 Year
  Sex: Male

DRUGS (2)
  1. ENBREL [Suspect]
     Indication: PSORIATIC ARTHROPATHY
     Dosage: 50 mg, 2 times/wk
     Dates: start: 20040501
  2. ENBREL [Suspect]
     Indication: PSORIASIS

REACTIONS (5)
  - Lyme disease [Recovered/Resolved]
  - Tooth infection [Recovered/Resolved]
  - Rash [Not Recovered/Not Resolved]
  - Arthropod bite [Recovered/Resolved]
  - Oedema peripheral [Recovered/Resolved]
